FAERS Safety Report 7619832-1 (Version None)
Quarter: 2011Q3

REPORT INFORMATION
  Report Type: 
  Country: None (occurrence: None)
  Receive Date: 20110719
  Receipt Date: 20110708
  Transmission Date: 20111222
  Serious: Yes (Hospitalization)
  Sender: FDA-Public Use
  Company Number: JP-NOVOPROD-329724

PATIENT
  Age: 56 Year
  Sex: Female
  Weight: 73 kg

DRUGS (5)
  1. ACTOS [Concomitant]
     Dosage: 15 MG, QD
     Route: 048
     Dates: end: 20110607
  2. DIOVAN [Concomitant]
     Dosage: 80 MG, QD
     Route: 048
  3. NORVASC [Suspect]
     Dosage: 5 MG, QD
     Route: 048
  4. PLAVIX [Concomitant]
     Dosage: 75 MG, QD
     Route: 048
  5. VICTOZA [Suspect]
     Indication: TYPE 2 DIABETES MELLITUS
     Dosage: 0.9 MG, QD
     Route: 058
     Dates: start: 20101201, end: 20110607

REACTIONS (1)
  - PANCREATITIS ACUTE [None]
